FAERS Safety Report 25477743 (Version 1)
Quarter: 2025Q2

REPORT INFORMATION
  Report Type: Spontaneous
  Country: US (occurrence: US)
  Receive Date: 20250625
  Receipt Date: 20250625
  Transmission Date: 20250716
  Serious: Yes (Other)
  Sender: ALEXION PHARMACEUTICALS
  Company Number: US-AstraZeneca-CH-00896642AP

PATIENT
  Age: 64 Year

DRUGS (1)
  1. TEZSPIRE [Suspect]
     Active Substance: TEZEPELUMAB-EKKO
     Dosage: 210 MILLIGRAM, Q4W

REACTIONS (6)
  - Diabetes mellitus [Unknown]
  - Chronic disease [Unknown]
  - Asthma [Unknown]
  - Hypersensitivity [Unknown]
  - Product dose omission issue [Unknown]
  - Wrong technique in device usage process [Unknown]
